FAERS Safety Report 18065969 (Version 1)
Quarter: 2020Q3

REPORT INFORMATION
  Report Type: Spontaneous
  Country: US (occurrence: US)
  Receive Date: 20200724
  Receipt Date: 20200724
  Transmission Date: 20201103
  Serious: No
  Sender: FDA-Public Use
  Company Number: None

PATIENT
  Age: 86 Year
  Sex: Female

DRUGS (2)
  1. PROPOFOL. [Suspect]
     Active Substance: PROPOFOL
     Indication: COLONOSCOPY
     Dosage: ?          OTHER FREQUENCY:X1;?
     Route: 042
     Dates: start: 20200723, end: 20200723
  2. PROPOFOL. [Suspect]
     Active Substance: PROPOFOL
     Indication: ENDOSCOPY UPPER GASTROINTESTINAL TRACT
     Dosage: ?          OTHER FREQUENCY:X1;?
     Route: 042
     Dates: start: 20200723, end: 20200723

REACTIONS (1)
  - Drug effect less than expected [None]

NARRATIVE: CASE EVENT DATE: 20200723
